FAERS Safety Report 10675658 (Version 1)
Quarter: 2014Q4

REPORT INFORMATION
  Report Type: Spontaneous
  Country: DE (occurrence: DE)
  Receive Date: 20141224
  Receipt Date: 20141224
  Transmission Date: 20150529
  Serious: Yes (Hospitalization)
  Sender: FDA-Public Use
  Company Number: DE-WATSON-2014-27312

PATIENT
  Age: 49 Year
  Sex: Female

DRUGS (3)
  1. MEPIVACAINE [Suspect]
     Active Substance: MEPIVACAINE\MEPIVACAINE HYDROCHLORIDE
     Indication: SURGERY
     Dosage: 8 ML, DAILY
     Route: 065
     Dates: start: 20141120
  2. ULTRACAIN [Suspect]
     Active Substance: ARTICAINE HYDROCHLORIDE
     Indication: DENTAL OPERATION
     Dosage: UNK, UNKNOWN
     Route: 065
     Dates: start: 20141121
  3. IBUPROFEN. [Concomitant]
     Active Substance: IBUPROFEN
     Indication: POSTOPERATIVE ANALGESIA
     Dosage: UNK, UNKNOWN
     Route: 065
     Dates: start: 20141120

REACTIONS (3)
  - Hearing impaired [Not Recovered/Not Resolved]
  - Dizziness [Not Recovered/Not Resolved]
  - Vomiting [Not Recovered/Not Resolved]

NARRATIVE: CASE EVENT DATE: 20141122
